FAERS Safety Report 6282627 (Version 3)
Quarter: 2018Q3

REPORT INFORMATION
  Report Type: Spontaneous
  Country: US (occurrence: US)
  Receive Date: 20061213
  Receipt Date: 20180815
  Transmission Date: 20181010
  Serious: Yes (Other)
  Sender: FDA-Public Use
  Company Number: US-ASTRAZENECA-2006UW03302

PATIENT
  Sex: Male

DRUGS (1)
  1. SEROQUEL [Suspect]
     Active Substance: QUETIAPINE FUMARATE
     Route: 048

REACTIONS (5)
  - Diabetes mellitus [Unknown]
  - Pancreatitis [Unknown]
  - Chronic kidney disease [Unknown]
  - Ketoacidosis [Unknown]
  - End stage renal disease [Unknown]
